FAERS Safety Report 12843131 (Version 4)
Quarter: 2016Q4

REPORT INFORMATION
  Report Type: Spontaneous
  Country: LB (occurrence: LB)
  Receive Date: 20161013
  Receipt Date: 20161129
  Transmission Date: 20170207
  Serious: Yes (Death, Hospitalization, Other)
  Sender: FDA-Public Use
  Company Number: LB-PFIZER INC-2016463283

PATIENT
  Age: 48 Year
  Sex: Male

DRUGS (1)
  1. XALKORI [Suspect]
     Active Substance: CRIZOTINIB
     Indication: NON-SMALL CELL LUNG CANCER
     Dosage: 250 MG, UNK
     Route: 048
     Dates: start: 201604, end: 20160924

REACTIONS (2)
  - Dyspnoea [Recovering/Resolving]
  - Pleural effusion [Fatal]

NARRATIVE: CASE EVENT DATE: 20160923
